FAERS Safety Report 5213805-4 (Version None)
Quarter: 2007Q1

REPORT INFORMATION
  Report Type: 
  Country: None (occurrence: None)
  Receive Date: 20070119
  Receipt Date: 20070111
  Transmission Date: 20070707
  Serious: Yes (Other)
  Sender: FDA-Public Use
  Company Number: US-ABBOTT-07P-163-0355702-00

PATIENT
  Sex: Male
  Weight: 144 kg

DRUGS (14)
  1. SYNTHROID [Suspect]
     Indication: DRUG USE FOR UNKNOWN INDICATION
  2. LEXAPRO [Interacting]
     Indication: DRUG USE FOR UNKNOWN INDICATION
  3. LAMOTRIGINE [Interacting]
     Indication: CONVULSION
     Route: 048
  4. ENOXAPARIN SODIUM [Interacting]
     Indication: DRUG USE FOR UNKNOWN INDICATION
  5. FOLIC ACID [Interacting]
     Indication: DRUG USE FOR UNKNOWN INDICATION
  6. PENTOXIFYLLINE [Interacting]
     Indication: DRUG USE FOR UNKNOWN INDICATION
  7. FOSAMAX [Interacting]
     Indication: DRUG USE FOR UNKNOWN INDICATION
  8. NEXIUM [Interacting]
     Indication: DRUG USE FOR UNKNOWN INDICATION
  9. GABAPENTIN [Interacting]
     Indication: DRUG USE FOR UNKNOWN INDICATION
  10. FUROSEMIDE [Interacting]
     Indication: DRUG USE FOR UNKNOWN INDICATION
  11. TRAZODONE HCL [Interacting]
     Indication: DRUG USE FOR UNKNOWN INDICATION
  12. CALCIUM [Interacting]
     Indication: DRUG USE FOR UNKNOWN INDICATION
  13. ASPIRIN [Interacting]
     Indication: DRUG USE FOR UNKNOWN INDICATION
  14. ERGOCALCIFEROL [Interacting]
     Indication: DRUG USE FOR UNKNOWN INDICATION

REACTIONS (4)
  - ANTICONVULSANT DRUG LEVEL BELOW THERAPEUTIC [None]
  - CONVULSION [None]
  - DRUG INEFFECTIVE [None]
  - DRUG INTERACTION [None]
